FAERS Safety Report 8305946-X (Version None)
Quarter: 2012Q1

REPORT INFORMATION
  Report Type: 
  Country: None (occurrence: None)
  Receive Date: 20120327
  Receipt Date: 20091201
  Transmission Date: 20120608
  Serious: Yes (Other)
  Sender: FDA-Public Use
  Company Number: PHEH2009US15954

PATIENT
  Age: 37 Year
  Sex: Female
  Weight: 49.4 kg

DRUGS (8)
  1. IMATINIB MESYLATE [Suspect]
     Indication: CHRONIC MYELOID LEUKAEMIA
     Dosage: 400 MG, QD
     Dates: start: 20091001, end: 20091101
  2. MULTIVITAMIN [Concomitant]
  3. GLEEVEC [Suspect]
     Indication: CHRONIC MYELOID LEUKAEMIA
     Dosage: 100 MG, TID, ORAL
     Route: 048
     Dates: start: 20091031, end: 20091102
  4. POTASSIUM CHLORIDE [Concomitant]
  5. CRANBERRY [Concomitant]
  6. HYDREA [Concomitant]
  7. CALCIUM CARBONATE [Concomitant]
  8. ALLOPURINOL [Concomitant]

REACTIONS (2)
  - GENERALISED OEDEMA [None]
  - EYE SWELLING [None]
